FAERS Safety Report 16551043 (Version 1)
Quarter: 2019Q3

REPORT INFORMATION
  Report Type: Spontaneous
  Country: US (occurrence: US)
  Receive Date: 20190529
  Receipt Date: 20190529
  Transmission Date: 20191004
  Serious: No
  Sender: FDA-Public Use
  Company Number: None

PATIENT
  Age: 14 Year
  Sex: Male

DRUGS (1)
  1. NORDITROPIN [Suspect]
     Active Substance: SOMATROPIN
     Indication: HYPOPITUITARISM
     Route: 058
     Dates: start: 201708

REACTIONS (5)
  - Vomiting [None]
  - Dizziness [None]
  - Headache [None]
  - Overdose [None]
  - Vision blurred [None]

NARRATIVE: CASE EVENT DATE: 20190529
